FAERS Safety Report 7767029-7 (Version None)
Quarter: 2011Q3

REPORT INFORMATION
  Report Type: 
  Country: None (occurrence: None)
  Receive Date: 20110922
  Receipt Date: 20110217
  Transmission Date: 20111222
  Serious: No
  Sender: FDA-Public Use
  Company Number: US-ASTRAZENECA-2009UW07882

PATIENT
  Age: 44 Year
  Sex: Female
  Weight: 127 kg

DRUGS (18)
  1. SEROQUEL [Suspect]
     Indication: SLEEP DISORDER
     Route: 048
     Dates: start: 20060119, end: 20090608
  2. METOPROLOL TARTRATE/METOPROLOL ER [Concomitant]
     Dosage: 50 MG HALF TABLET TWICE DAILY
  3. ZOLOFT [Concomitant]
  4. OXYCODONE AND ASPIRIN [Concomitant]
     Dosage: 4.88/325 PO TWICE DAILY AS NEEDED
     Dates: start: 20110217
  5. MS CONTIN [Concomitant]
     Dates: start: 20110217
  6. COLACE [Concomitant]
     Dates: start: 20110217
  7. LISINOPRIL [Concomitant]
     Dates: start: 20110217
  8. ERGOCALCIFEROL [Concomitant]
     Dosage: 50,000 UNITS 1 Q WEEK
     Dates: start: 20110217
  9. METOPROLOL TARTRATE/METOPROLOL ER [Concomitant]
     Dates: start: 20110217
  10. LORATADINE [Concomitant]
     Dates: start: 20110217
  11. XANAX [Concomitant]
     Dates: start: 20110217
  12. SEROQUEL [Suspect]
     Route: 048
     Dates: start: 20060119
  13. LEVOTHYROXINE SODIUM [Concomitant]
     Dosage: 50 MCG TAKE ONE TABLET DAILY
  14. TRAZODONE HCL [Concomitant]
     Dates: start: 20110217
  15. SEROQUEL [Suspect]
     Route: 048
     Dates: start: 20070101, end: 20090101
  16. LEVOTHYROXINE SODIUM [Concomitant]
     Dates: start: 20110217
  17. PRAVASTATIN [Concomitant]
     Dates: start: 20110217
  18. AMBIEN CR [Concomitant]

REACTIONS (2)
  - VISION BLURRED [None]
  - DIABETES MELLITUS [None]
